FAERS Safety Report 5604730-5 (Version None)
Quarter: 2008Q1

REPORT INFORMATION
  Report Type: 
  Country: None (occurrence: None)
  Receive Date: 20080128
  Receipt Date: 20080117
  Transmission Date: 20080703
  Serious: Yes (Hospitalization)
  Sender: FDA-Public Use
  Company Number: US-JNJFOC-20080104479

PATIENT
  Age: 1 Year
  Sex: Female

DRUGS (5)
  1. TYLENOL (CAPLET) [Suspect]
     Indication: NASOPHARYNGITIS
  2. ORAGEL [Suspect]
     Indication: TEETHING
  3. DIGOXIN [Concomitant]
     Indication: CARDIAC DISORDER
  4. COUMADIN [Concomitant]
     Indication: ANTICOAGULANT THERAPY
  5. FLOLAN [Concomitant]

REACTIONS (2)
  - CYANOSIS [None]
  - OFF LABEL USE [None]
